FAERS Safety Report 19956054 (Version 1)
Quarter: 2021Q4

REPORT INFORMATION
  Report Type: Spontaneous
  Country: CN (occurrence: CN)
  Receive Date: 20211014
  Receipt Date: 20211014
  Transmission Date: 20220303
  Serious: Yes (Hospitalization)
  Sender: FDA-Public Use
  Company Number: CN-009507513-2110CHN002193

PATIENT
  Age: 32 Year
  Sex: Male
  Weight: 60 kg

DRUGS (6)
  1. CILASTATIN SODIUM\IMIPENEM [Suspect]
     Active Substance: CILASTATIN SODIUM\IMIPENEM
     Indication: Abdominal infection
     Dosage: 1 GRAM, FOUR TIMES A DAY, ROUTE: IN-PUMP INJECTION
     Dates: start: 20210708, end: 20210711
  2. ELOCON [Suspect]
     Active Substance: MOMETASONE FUROATE
     Dosage: EXTERNAL USE
     Dates: start: 20210709, end: 20210710
  3. PANTOPRAZOLE SODIUM [Concomitant]
     Active Substance: PANTOPRAZOLE SODIUM
     Indication: Ill-defined disorder
     Dosage: 40 MILLIGRAM, TWICE A DAY
     Route: 041
     Dates: start: 20210707, end: 20210713
  4. SOMATOSTATIN [Concomitant]
     Active Substance: SOMATOSTATIN
     Indication: Pancreatic disorder
     Dosage: 6000 MICROGRAM, ONE TIME A DAY, ROUTE: IN-PUMP INJECTION
     Dates: start: 20210707, end: 20210714
  5. SOMATOSTATIN [Concomitant]
     Active Substance: SOMATOSTATIN
     Indication: Traumatic pancreatitis
  6. SOMATOSTATIN [Concomitant]
     Active Substance: SOMATOSTATIN
     Indication: Pancreatic enzyme abnormality

REACTIONS (2)
  - Eczema [Recovering/Resolving]
  - Drug ineffective [Unknown]

NARRATIVE: CASE EVENT DATE: 20210709
